FAERS Safety Report 13455669 (Version 2)
Quarter: 2017Q2

REPORT INFORMATION
  Report Type: Spontaneous
  Country: US (occurrence: US)
  Receive Date: 20170419
  Receipt Date: 20170508
  Transmission Date: 20170830
  Serious: Yes (Hospitalization, Other)
  Sender: FDA-Public Use
  Company Number: US-SMITH AND NEPHEW, INC-2017SMT00225

PATIENT
  Age: 60 Year
  Sex: Male
  Weight: 131.52 kg

DRUGS (10)
  1. ATORVASTATIN [Concomitant]
     Active Substance: ATORVASTATIN
  2. NEURONTIN [Concomitant]
     Active Substance: GABAPENTIN
  3. WARFARIN [Concomitant]
     Active Substance: WARFARIN
  4. INSULIN PUMP (UNSPECIFIED) [Concomitant]
  5. REGRANEX [Suspect]
     Active Substance: BECAPLERMIN
     Indication: WOUND
     Dosage: UNK, 1X/DAY (12 HOURS ON, 12 HOURS OFF)
     Route: 061
     Dates: start: 201703, end: 201703
  6. RAMIPRIL. [Concomitant]
     Active Substance: RAMIPRIL
  7. SOTALOL. [Concomitant]
     Active Substance: SOTALOL
  8. VITAMIN B6 [Concomitant]
     Active Substance: PYRIDOXINE HYDROCHLORIDE
  9. MAGNESIUM [Concomitant]
     Active Substance: MAGNESIUM
  10. ASPIRIN. [Concomitant]
     Active Substance: ASPIRIN
     Indication: WOUND
     Dosage: 81 MG, 2X/DAY

REACTIONS (3)
  - Wound complication [Not Recovered/Not Resolved]
  - Osteomyelitis [Unknown]
  - Amputation [Recovered/Resolved]

NARRATIVE: CASE EVENT DATE: 201703
